APPROVED DRUG PRODUCT: EPIVIR
Active Ingredient: LAMIVUDINE
Strength: 150MG
Dosage Form/Route: TABLET;ORAL
Application: N020564 | Product #001 | TE Code: AB
Applicant: VIIV HEALTHCARE CO
Approved: Nov 17, 1995 | RLD: Yes | RS: No | Type: RX